FAERS Safety Report 6879343 (Version 4)
Quarter: 2013Q1

REPORT INFORMATION
  Report Type: Report from Study
  Country: US (occurrence: US)
  Receive Date: 20090113
  Receipt Date: 20130201
  Transmission Date: 20140127
  Serious: Yes (Other)
  Sender: FDA-Public Use
  Company Number: US-ROCHE-606205

PATIENT
  Age: 74 Year
  Sex: Male
  Weight: 83.9 kg

DRUGS (2)
  1. XELODA [Suspect]
     Indication: SALIVARY GLAND NEOPLASM
     Route: 065
     Dates: start: 20080818, end: 200811
  2. TAXOL [Concomitant]

REACTIONS (6)
  - Disease progression [Unknown]
  - Asthenia [Unknown]
  - Fatigue [Unknown]
  - Hypersomnia [Unknown]
  - Stomatitis [Unknown]
  - Cheilitis [Unknown]
